FAERS Safety Report 8723993 (Version 2)
Quarter: 2015Q2

REPORT INFORMATION
  Report Type: Report from Study
  Country: JP (occurrence: JP)
  Receive Date: 20120815
  Receipt Date: 20150623
  Transmission Date: 20150821
  Serious: Yes (Hospitalization, Other)
  Sender: FDA-Public Use
  Company Number: JP-SHIRE-SPV1-2010-01778

PATIENT
  Age: 75 Year
  Sex: Female

DRUGS (43)
  1. CALTAN [Suspect]
     Active Substance: CALCIUM CARBONATE
     Dosage: 1500 MG, UNKNOWN
     Route: 048
     Dates: start: 20110804, end: 20111207
  2. CALTAN [Suspect]
     Active Substance: CALCIUM CARBONATE
     Dosage: 1500 MG, UNKNOWN
     Route: 048
     Dates: start: 20130312, end: 20130513
  3. 405 (LANTHANUM CARBONATE) [Suspect]
     Active Substance: LANTHANUM CARBONATE
     Dosage: 750 MG, UNKNOWN (IMMEDIATELY AFTER MEALS)
     Route: 048
     Dates: start: 20090616, end: 20091111
  4. 405 (LANTHANUM CARBONATE) [Suspect]
     Active Substance: LANTHANUM CARBONATE
     Dosage: 1500 MG, UNKNOWN (IMMEDIATELY AFTER MEALS)
     Route: 048
     Dates: start: 20091112, end: 20091202
  5. CARCIOROL [Suspect]
     Active Substance: CALCITRIOL
     Dosage: 3.0 ?G, 1X/WEEK (1.5 MCG 2X/WEEK)
     Route: 048
     Dates: start: 20091230, end: 20100513
  6. ROCALTROL [Concomitant]
     Active Substance: CALCITRIOL
     Dosage: 2 ?G, UNKNOWN
     Route: 048
     Dates: start: 20091104, end: 20091201
  7. BAYASPIRIN [Concomitant]
     Active Substance: ASPIRIN
     Indication: PRODUCT USED FOR UNKNOWN INDICATION
     Dosage: 100 MG, UNKNOWN
     Route: 048
  8. AMOBAN [Concomitant]
     Active Substance: ZOPICLONE
     Indication: PRODUCT USED FOR UNKNOWN INDICATION
     Dosage: 7.5 MG, UNKNOWN
     Route: 048
  9. FULSTAN [Concomitant]
     Dosage: 1.2 ?G, UNKNOWN
     Route: 048
     Dates: start: 20110915, end: 20111108
  10. 405 (LANTHANUM CARBONATE) [Suspect]
     Active Substance: LANTHANUM CARBONATE
     Indication: HYPERPHOSPHATAEMIA
     Dosage: 750 MG, UNKNOWN
     Route: 048
     Dates: start: 20120626, end: 20131014
  11. 405 (LANTHANUM CARBONATE) [Suspect]
     Active Substance: LANTHANUM CARBONATE
     Dosage: 1500 MG, UNKNOWN
     Route: 048
     Dates: start: 20131015, end: 20131121
  12. CALTAN [Suspect]
     Active Substance: CALCIUM CARBONATE
     Dosage: 1500 MG, UNKNOWN
     Route: 048
     Dates: start: 20100602, end: 20110531
  13. CARCIOROL [Suspect]
     Active Substance: CALCITRIOL
     Indication: PRODUCT USED FOR UNKNOWN INDICATION
     Dosage: 1.5 ?G, 1X/WEEK (0.75 MCG 2X/WEEK)
     Route: 048
     Dates: start: 20091202, end: 20091229
  14. FULSTAN [Concomitant]
     Dosage: 0.6 ?G, 1X/WEEK
     Route: 048
     Dates: start: 20110804, end: 20110914
  15. FULSTAN [Concomitant]
     Dosage: 0.6 ?G, UNKNOWN
     Route: 048
     Dates: start: 20111222, end: 20120314
  16. CALTAN [Suspect]
     Active Substance: CALCIUM CARBONATE
     Indication: HYPERPHOSPHATAEMIA
     Dosage: 1500 MG, UNKNOWN
     Route: 048
     Dates: start: 20091203, end: 20100513
  17. CARCIOROL [Suspect]
     Active Substance: CALCITRIOL
     Dosage: 1.5 ?G, 1X/WEEK (0.75 MCG 2X/WEEK)
     Route: 048
     Dates: start: 20120814, end: 20130123
  18. CARCIOROL [Suspect]
     Active Substance: CALCITRIOL
     Dosage: 0.5 ?G, 1X/WEEK (0.25 MCG 2X/WEEK)
     Route: 048
     Dates: start: 20130328, end: 20130520
  19. ERSIBON [Concomitant]
     Dosage: 0.25 ?G, UNKNOWN
     Route: 048
     Dates: start: 20100728, end: 20100902
  20. ITOROL [Concomitant]
     Active Substance: ISOSORBIDE MONONITRATE
     Indication: PRODUCT USED FOR UNKNOWN INDICATION
     Dosage: 40 MG, UNKNOWN
     Route: 048
  21. FULSTAN [Concomitant]
     Dosage: 0.9 ?G, UNKNOWN
     Route: 048
     Dates: start: 20120315, end: 20120404
  22. CALTAN [Suspect]
     Active Substance: CALCIUM CARBONATE
     Dosage: 3000 MG, UNKNOWN
     Route: 048
     Dates: start: 20111208, end: 20130123
  23. CALTAN [Suspect]
     Active Substance: CALCIUM CARBONATE
     Dosage: 3000 MG, UNKNOWN
     Route: 048
     Dates: start: 20130514, end: 20130614
  24. CARCIOROL [Suspect]
     Active Substance: CALCITRIOL
     Dosage: 1.5 ?G, 1X/WEEK (0.75 MCG 2X/WEEK)
     Route: 048
     Dates: start: 20130625, end: 20131028
  25. CARCIOROL [Suspect]
     Active Substance: CALCITRIOL
     Dosage: 2.0 ?G, 1X/WEEK (1 MCG 2X/WEEK)
     Route: 048
     Dates: start: 20131029, end: 20131111
  26. ROCALTROL [Concomitant]
     Active Substance: CALCITRIOL
     Indication: PRODUCT USED FOR UNKNOWN INDICATION
     Dosage: 1 ?G, UNKNOWN
     Route: 048
     Dates: start: 20091021, end: 20091103
  27. FULSTAN [Concomitant]
     Dosage: 0.9 ?G, 1X/WEEK
     Route: 048
     Dates: start: 20110406, end: 20110803
  28. CALTAN [Suspect]
     Active Substance: CALCIUM CARBONATE
     Dosage: 3000 MG, UNKNOWN
     Route: 048
     Dates: start: 20110601
  29. CARCIOROL [Suspect]
     Active Substance: CALCITRIOL
     Dosage: 1.0 ?G, 1X/WEEK (0.5 MCG 2X/WEEK)
     Route: 048
     Dates: start: 20130521, end: 20130614
  30. CARCIOROL [Suspect]
     Active Substance: CALCITRIOL
     Dosage: 2.5 ?G, 1X/WEEK (1.25 MCG 2X/WEEK)
     Route: 048
     Dates: start: 20131112
  31. SIMVASTATIN. [Concomitant]
     Active Substance: SIMVASTATIN
     Indication: PRODUCT USED FOR UNKNOWN INDICATION
     Dosage: 5 MG, UNKNOWN
     Route: 048
  32. AMLODIPINE [Concomitant]
     Active Substance: AMLODIPINE BESYLATE
     Indication: PRODUCT USED FOR UNKNOWN INDICATION
     Dosage: 2.5 MG, UNKNOWN
     Route: 048
  33. 405 (LANTHANUM CARBONATE) [Suspect]
     Active Substance: LANTHANUM CARBONATE
     Indication: HYPERPHOSPHATAEMIA
     Dosage: 750 MG, UNKNOWN (IMMEDIATELY AFTER MEALS)
     Route: 048
     Dates: start: 20091203, end: 20120626
  34. BIOFERMIN [Concomitant]
     Active Substance: BACILLUS SUBTILIS\LACTOBACILLUS ACIDOPHILUS\STREPTOCOCCUS FAECAIS
     Indication: PRODUCT USED FOR UNKNOWN INDICATION
     Dosage: 1.5 G, UNKNOWN
     Route: 048
  35. DIOVAN [Concomitant]
     Active Substance: VALSARTAN
     Indication: PRODUCT USED FOR UNKNOWN INDICATION
     Dosage: 80 MG, UNKNOWN
     Route: 048
  36. CARCIOROL [Suspect]
     Active Substance: CALCITRIOL
     Dosage: 1 ?G, 1X/WEEK (0.5 MCG 2X/WEEK)
     Route: 048
     Dates: start: 20120405, end: 20120813
  37. ERSIBON [Concomitant]
     Indication: PRODUCT USED FOR UNKNOWN INDICATION
     Dosage: .25 UG, UNKNOWN
     Route: 048
     Dates: start: 20080911, end: 20091020
  38. REBAMIPIDE [Concomitant]
     Active Substance: REBAMIPIDE
     Indication: PRODUCT USED FOR UNKNOWN INDICATION
     Dosage: 300 MG, UNKNOWN
     Route: 048
  39. MAINTATE [Concomitant]
     Active Substance: BISOPROLOL FUMARATE
     Indication: PRODUCT USED FOR UNKNOWN INDICATION
     Dosage: 10 MG, UNKNOWN
     Route: 048
  40. OMERAP [Concomitant]
     Indication: PRODUCT USED FOR UNKNOWN INDICATION
     Dosage: 10 MG, UNKNOWN
     Route: 048
  41. ALLORIN [Concomitant]
     Indication: PRODUCT USED FOR UNKNOWN INDICATION
     Dosage: 100 MG, UNKNOWN
     Route: 048
  42. CALFINA [Concomitant]
     Active Substance: ALFACALCIDOL
     Indication: PRODUCT USED FOR UNKNOWN INDICATION
     Dosage: 1 ?G, 1X/WEEK
     Route: 048
     Dates: start: 20100903, end: 20101214
  43. FULSTAN [Concomitant]
     Indication: PRODUCT USED FOR UNKNOWN INDICATION
     Dosage: 1.2 ?G, 1X/WEEK
     Route: 048
     Dates: start: 20101215, end: 20110405

REACTIONS (7)
  - Hypercalcaemia [None]
  - Gastrointestinal haemorrhage [Recovered/Resolved]
  - Haemorrhagic anaemia [Recovered/Resolved]
  - Hyperphosphataemia [None]
  - Iron deficiency anaemia [None]
  - Cholelithiasis [None]
  - Anaemia [Recovered/Resolved]

NARRATIVE: CASE EVENT DATE: 20100525
